FAERS Safety Report 5716531-8 (Version None)
Quarter: 2008Q2

REPORT INFORMATION
  Report Type: 
  Country: None (occurrence: None)
  Receive Date: 20080424
  Receipt Date: 20080416
  Transmission Date: 20081010
  Serious: Yes (Other)
  Sender: FDA-Public Use
  Company Number: FR-ELI_LILLY_AND_COMPANY-FR200804004199

PATIENT
  Age: 6 Year
  Sex: Female

DRUGS (1)
  1. HUMATROPE [Suspect]
     Indication: GROWTH RETARDATION
     Dosage: 0.18 MG/KG, DAILY (1/D)

REACTIONS (6)
  - ANAEMIA [None]
  - HYPERLACTACIDAEMIA [None]
  - NERVOUS SYSTEM DISORDER [None]
  - NO THERAPEUTIC RESPONSE [None]
  - RENAL TUBULAR DISORDER [None]
  - VISUAL ACUITY REDUCED [None]
